FAERS Safety Report 9572570 (Version 2)
Quarter: 2013Q4

REPORT INFORMATION
  Report Type: Report from Study
  Country: BR (occurrence: BR)
  Receive Date: 20131001
  Receipt Date: 20131001
  Transmission Date: 20140711
  Serious: Yes (Hospitalization, Other)
  Sender: FDA-Public Use
  Company Number: BR-ABBVIE-13P-020-1043367-00

PATIENT
  Age: 34 Year
  Sex: Male
  Weight: 86 kg

DRUGS (4)
  1. HUMIRA [Suspect]
     Indication: CROHN^S DISEASE
     Route: 058
     Dates: start: 201211, end: 20130114
  2. UNKNOWN IMMUNOSUPPRESSANTS [Suspect]
     Indication: PRODUCT USED FOR UNKNOWN INDICATION
  3. AZATHIOPRINE [Concomitant]
     Indication: CROHN^S DISEASE
     Route: 048
     Dates: start: 2011
  4. AZATHIOPRINE [Concomitant]
     Route: 048

REACTIONS (9)
  - Tuberculosis [Recovered/Resolved]
  - Pleural effusion [Recovered/Resolved]
  - Cough [Not Recovered/Not Resolved]
  - Dyspnoea [Unknown]
  - Pyrexia [Recovered/Resolved]
  - Crohn^s disease [Unknown]
  - Inflammation [Recovered/Resolved]
  - Gait disturbance [Recovered/Resolved]
  - Gastrointestinal inflammation [Not Recovered/Not Resolved]
